FAERS Safety Report 6420703-7 (Version None)
Quarter: 2009Q4

REPORT INFORMATION
  Report Type: 
  Country: None (occurrence: None)
  Receive Date: 20091027
  Receipt Date: 20050214
  Transmission Date: 20100525
  Serious: Yes (Hospitalization)
  Sender: FDA-Public Use
  Company Number: 2009009211

PATIENT
  Age: 78 Year
  Sex: Male
  Weight: 72.1219 kg

DRUGS (5)
  1. ACTIQ [Suspect]
     Indication: NEUROPATHY PERIPHERAL
     Dosage: BU; 1600 MCG (800 MCG, 2 IN 1 D), BU
     Route: 002
     Dates: start: 20040101
  2. DURAGESIC /00174601/ (FENTANYL) [Concomitant]
  3. LASIX [Concomitant]
  4. COREG [Concomitant]
  5. VASOTEC [Concomitant]

REACTIONS (3)
  - ACCIDENT AT HOME [None]
  - FALL [None]
  - HIP FRACTURE [None]
